FAERS Safety Report 6636749-X (Version None)
Quarter: 2010Q1

REPORT INFORMATION
  Report Type: 
  Country: None (occurrence: None)
  Receive Date: 20100226
  Receipt Date: 20091231
  Transmission Date: 20100710
  Serious: Yes (Other)
  Sender: FDA-Public Use
  Company Number: 296440

PATIENT
  Age: 13 Year
  Sex: Male
  Weight: 50.8 kg

DRUGS (2)
  1. NUTROPIN AQ [Suspect]
     Indication: GROWTH HORMONE DEFICIENCY
     Dosage: 3 MG, 7/WEEK, SUBCUTANEOUS
     Route: 058
     Dates: start: 20090527
  2. FEMARA [Concomitant]

REACTIONS (1)
  - INTRACRANIAL PRESSURE INCREASED [None]
